FAERS Safety Report 8069352-8 (Version None)
Quarter: 2012Q1

REPORT INFORMATION
  Report Type: 
  Country: None (occurrence: None)
  Receive Date: 20120125
  Receipt Date: 20120120
  Transmission Date: 20120608
  Serious: Yes (Death, Other)
  Sender: FDA-Public Use
  Company Number: US-JNJFOC-20120109778

PATIENT
  Age: 71 Year

DRUGS (32)
  1. CYCLOPHOSPHAMIDE [Suspect]
     Indication: BURKITT'S LYMPHOMA
     Route: 065
  2. DOXORUBICIN HCL [Suspect]
     Indication: BURKITT'S LYMPHOMA
     Route: 042
  3. CYCLOPHOSPHAMIDE [Suspect]
     Route: 065
  4. RITUXIMAB [Suspect]
     Route: 042
  5. IFOSFAMIDE [Suspect]
     Indication: BURKITT'S LYMPHOMA
     Route: 065
  6. CYTARABINE [Suspect]
     Route: 065
  7. VINCRISTINE [Suspect]
     Route: 065
  8. VINCRISTINE [Suspect]
     Route: 065
  9. METHOTREXATE [Suspect]
     Route: 042
  10. RITUXIMAB [Suspect]
     Indication: BURKITT'S LYMPHOMA
     Route: 042
  11. CYTARABINE [Suspect]
     Route: 065
  12. DOXORUBICIN HCL [Suspect]
     Route: 042
  13. DOXORUBICIN HCL [Suspect]
     Route: 042
  14. METHOTREXATE [Suspect]
     Route: 042
  15. CYCLOPHOSPHAMIDE [Suspect]
     Route: 065
  16. ETOPOSIDE [Suspect]
     Indication: BURKITT'S LYMPHOMA
     Route: 065
  17. METHOTREXATE [Suspect]
     Route: 042
  18. RITUXIMAB [Suspect]
     Route: 042
  19. IFOSFAMIDE [Suspect]
     Route: 065
  20. IFOSFAMIDE [Suspect]
     Route: 065
  21. ETOPOSIDE [Suspect]
     Route: 065
  22. CYTARABINE [Suspect]
     Route: 065
  23. DOXORUBICIN HCL [Suspect]
     Route: 042
  24. CYCLOPHOSPHAMIDE [Suspect]
     Route: 065
  25. ETOPOSIDE [Suspect]
     Route: 065
  26. VINCRISTINE [Suspect]
     Indication: BURKITT'S LYMPHOMA
     Route: 065
  27. VINCRISTINE [Suspect]
     Route: 065
  28. METHOTREXATE [Suspect]
     Indication: BURKITT'S LYMPHOMA
     Route: 042
  29. RITUXIMAB [Suspect]
     Route: 042
  30. IFOSFAMIDE [Suspect]
     Route: 065
  31. ETOPOSIDE [Suspect]
     Route: 065
  32. CYTARABINE [Suspect]
     Indication: BURKITT'S LYMPHOMA
     Route: 065

REACTIONS (1)
  - DEATH [None]
